FAERS Safety Report 5997957-4 (Version None)
Quarter: 2008Q4

REPORT INFORMATION
  Report Type: 
  Country: None (occurrence: None)
  Receive Date: 20081211
  Receipt Date: 20081202
  Transmission Date: 20090506
  Serious: Yes (Other)
  Sender: FDA-Public Use
  Company Number: GXKR2008US11512

PATIENT
  Age: 35 Year
  Sex: Male

DRUGS (15)
  1. TRIAMCINOLONE [Suspect]
     Indication: SCIATICA
     Dosage: 60 MG, ONCE/SINGLE, EPIDURAL, 80 MG, ONCE/SINGLE, EPIDURAL
     Route: 008
  2. RITONAVIR (RITONAVIR) [Suspect]
     Indication: HIV INFECTION
     Dosage: 100 MG, BID
  3. LOPINAVIR (LOPINAVIR) [Suspect]
     Indication: HIV INFECTION
     Dosage: 400 MG, BID
  4. ATAZANAVIR SULFATE [Suspect]
     Indication: HIV INFECTION
  5. EMTRICITABINE (EMTRICITABINE) [Concomitant]
  6. TENOFOVIR DISOPROXIL FUMARATE [Concomitant]
  7. RABEPRAZOL (RABEPRAZOLE) [Concomitant]
  8. ACETAMINOPHEN AND OXYCODONE HCL [Concomitant]
  9. FEXOFENADINE HCL [Concomitant]
  10. GABAPENTIN [Concomitant]
  11. OXYCODONE HCL [Concomitant]
  12. CYCLOBENZAPRINE [Concomitant]
  13. STAVUDINE [Concomitant]
  14. LAMIVUDINE [Concomitant]
  15. NEVIRAPINE [Concomitant]

REACTIONS (12)
  - CUSHING'S SYNDROME [None]
  - DRUG INTERACTION [None]
  - GLUCOSE TOLERANCE IMPAIRED [None]
  - HYPERTENSION [None]
  - HYPERVOLAEMIA [None]
  - IMPAIRED HEALING [None]
  - INTERVERTEBRAL DISC PROTRUSION [None]
  - LACERATION [None]
  - MUSCULOSKELETAL DISCOMFORT [None]
  - ORAL CANDIDIASIS [None]
  - OSTEONECROSIS [None]
  - SUICIDAL IDEATION [None]
